FAERS Safety Report 5133910-0 (Version None)
Quarter: 2006Q4

REPORT INFORMATION
  Report Type: 
  Country: None (occurrence: None)
  Receive Date: 20061019
  Receipt Date: 20061006
  Transmission Date: 20070319
  Serious: Yes (Other)
  Sender: FDA-Public Use
  Company Number: 2006123002

PATIENT
  Age: 62 Year
  Sex: Female

DRUGS (3)
  1. DETRUSITOL SR (TOLTERODINE) [Suspect]
     Indication: POLLAKIURIA
     Dosage: 4 MG, ORAL
     Route: 048
     Dates: start: 20060921, end: 20060901
  2. TENORMIN [Concomitant]
  3. IMIDAPRIL HYDROCHLORIDE [Concomitant]

REACTIONS (2)
  - BLOOD PRESSURE DECREASED [None]
  - BLOOD PRESSURE INCREASED [None]
